FAERS Safety Report 6166638-9 (Version None)
Quarter: 2009Q2

REPORT INFORMATION
  Report Type: 
  Country: None (occurrence: None)
  Receive Date: 20090423
  Receipt Date: 20090423
  Transmission Date: 20091009
  Serious: Yes (Other)
  Sender: FDA-Public Use
  Company Number: None

PATIENT
  Age: 38 Year
  Sex: Male
  Weight: 86.1834 kg

DRUGS (1)
  1. BIAXIN [Suspect]
     Indication: BRONCHITIS
     Dosage: 1 500 MG TAB 2X DAY PO
     Route: 048
     Dates: start: 20090420, end: 20090421

REACTIONS (5)
  - AGEUSIA [None]
  - ANOSMIA [None]
  - ANXIETY [None]
  - DYSGEUSIA [None]
  - NIGHTMARE [None]
